FAERS Safety Report 8532732-8 (Version None)
Quarter: 2012Q3

REPORT INFORMATION
  Report Type: 
  Country: None (occurrence: None)
  Receive Date: 20120724
  Receipt Date: 20120718
  Transmission Date: 20120928
  Serious: Yes (Hospitalization, Other)
  Sender: FDA-Public Use
  Company Number: PHHO2012DE006760

PATIENT
  Sex: Male
  Weight: 76.6 kg

DRUGS (7)
  1. PROGRAF [Suspect]
     Indication: RENAL TRANSPLANT
     Dosage: 1.5-0-1MG
     Route: 048
     Dates: start: 20120318, end: 20120427
  2. PREDNISONE [Suspect]
     Dosage: 15 MG, QD
     Route: 048
  3. SIMULECT [Concomitant]
     Indication: RENAL TRANSPLANT
     Dosage: 20 MG, UNK
     Route: 042
     Dates: start: 20120318
  4. MYFORTIC [Suspect]
     Indication: RENAL TRANSPLANT
     Dosage: 360 MG, BID
     Route: 048
     Dates: start: 20120318, end: 20120502
  5. MYFORTIC [Suspect]
     Dosage: 360 MG, BID
     Route: 048
  6. PROGRAF [Suspect]
     Dosage: 2 MG-0-1.5 MG
     Route: 048
  7. PREDNISONE [Suspect]
     Indication: RENAL TRANSPLANT
     Dosage: 20 MG, QD
     Route: 048
     Dates: start: 20120319, end: 20120502

REACTIONS (2)
  - INFECTION [None]
  - KIDNEY TRANSPLANT REJECTION [None]
